FAERS Safety Report 8146398-2 (Version None)
Quarter: 2012Q1

REPORT INFORMATION
  Report Type: 
  Country: None (occurrence: None)
  Receive Date: 20120217
  Receipt Date: 20120104
  Transmission Date: 20120608
  Serious: No
  Sender: FDA-Public Use
  Company Number: US-ABBOTT-12P-163-0889255-00

PATIENT
  Sex: Male
  Weight: 98.972 kg

DRUGS (3)
  1. SIMCOR [Suspect]
     Indication: CYTOGENETIC ANALYSIS ABNORMAL
     Dosage: 500/20MG
     Dates: start: 20111217
  2. BENADRYL [Concomitant]
     Indication: PRODUCT USED FOR UNKNOWN INDICATION
  3. ASPIRIN [Concomitant]
     Indication: PRODUCT USED FOR UNKNOWN INDICATION
     Dosage: 1 HOUR PRIOR TO SIMCOR

REACTIONS (4)
  - SENSORY DISTURBANCE [None]
  - FLUSHING [None]
  - ERYTHEMA [None]
  - FEELING HOT [None]
